FAERS Safety Report 25616540 (Version 1)
Quarter: 2025Q3

REPORT INFORMATION
  Report Type: Spontaneous
  Country: EU (occurrence: EU)
  Receive Date: 20250729
  Receipt Date: 20250729
  Transmission Date: 20251021
  Serious: Yes (Hospitalization)
  Sender: MYLAN
  Company Number: None

PATIENT
  Age: 56 Year
  Sex: Male
  Weight: 138 kg

DRUGS (80)
  1. ATORVASTATIN [Suspect]
     Active Substance: ATORVASTATIN
     Indication: Dyslipidaemia
     Dosage: 10 MILLIGRAM, QD
  2. ATORVASTATIN [Suspect]
     Active Substance: ATORVASTATIN
     Dosage: 10 MILLIGRAM, QD
     Route: 048
  3. ATORVASTATIN [Suspect]
     Active Substance: ATORVASTATIN
     Dosage: 10 MILLIGRAM, QD
     Route: 048
  4. ATORVASTATIN [Suspect]
     Active Substance: ATORVASTATIN
     Dosage: 10 MILLIGRAM, QD
  5. ACETAMINOPHEN [Suspect]
     Active Substance: ACETAMINOPHEN
     Indication: Pain
  6. ACETAMINOPHEN [Suspect]
     Active Substance: ACETAMINOPHEN
     Route: 048
  7. ACETAMINOPHEN [Suspect]
     Active Substance: ACETAMINOPHEN
     Route: 048
  8. ACETAMINOPHEN [Suspect]
     Active Substance: ACETAMINOPHEN
  9. REPAGLINIDE [Suspect]
     Active Substance: REPAGLINIDE
     Indication: Insulin-requiring type 2 diabetes mellitus
     Dosage: 9 MILLIGRAM, QD
     Dates: end: 20250626
  10. REPAGLINIDE [Suspect]
     Active Substance: REPAGLINIDE
     Dosage: 9 MILLIGRAM, QD
     Route: 048
     Dates: end: 20250626
  11. REPAGLINIDE [Suspect]
     Active Substance: REPAGLINIDE
     Dosage: 9 MILLIGRAM, QD
     Route: 048
     Dates: end: 20250626
  12. REPAGLINIDE [Suspect]
     Active Substance: REPAGLINIDE
     Dosage: 9 MILLIGRAM, QD
     Dates: end: 20250626
  13. POLYETHYLENE GLYCOLS [Suspect]
     Active Substance: POLYETHYLENE GLYCOLS
     Indication: Constipation
  14. POLYETHYLENE GLYCOLS [Suspect]
     Active Substance: POLYETHYLENE GLYCOLS
     Route: 048
  15. POLYETHYLENE GLYCOLS [Suspect]
     Active Substance: POLYETHYLENE GLYCOLS
     Route: 048
  16. POLYETHYLENE GLYCOLS [Suspect]
     Active Substance: POLYETHYLENE GLYCOLS
  17. LOPERAMIDE [Suspect]
     Active Substance: LOPERAMIDE
     Indication: Prophylaxis
     Dosage: 2 MILLIGRAM, QD
  18. LOPERAMIDE [Suspect]
     Active Substance: LOPERAMIDE
     Dosage: 2 MILLIGRAM, QD
     Route: 048
  19. LOPERAMIDE [Suspect]
     Active Substance: LOPERAMIDE
     Dosage: 2 MILLIGRAM, QD
     Route: 048
  20. LOPERAMIDE [Suspect]
     Active Substance: LOPERAMIDE
     Dosage: 2 MILLIGRAM, QD
  21. DORZOLAMIDE [Suspect]
     Active Substance: DORZOLAMIDE
     Indication: Retinal detachment
     Dosage: 2 GTT DROPS, QD
     Dates: start: 20250620, end: 20250622
  22. DORZOLAMIDE [Suspect]
     Active Substance: DORZOLAMIDE
     Dosage: 2 GTT DROPS, QD
     Route: 031
     Dates: start: 20250620, end: 20250622
  23. DORZOLAMIDE [Suspect]
     Active Substance: DORZOLAMIDE
     Dosage: 2 GTT DROPS, QD
     Route: 031
     Dates: start: 20250620, end: 20250622
  24. DORZOLAMIDE [Suspect]
     Active Substance: DORZOLAMIDE
     Dosage: 2 GTT DROPS, QD
     Dates: start: 20250620, end: 20250622
  25. BRIMONIDINE [Suspect]
     Active Substance: BRIMONIDINE TARTRATE
     Indication: Retinal detachment
     Dosage: 3 GTT DROPS, QD
     Dates: start: 20250620, end: 20250620
  26. BRIMONIDINE [Suspect]
     Active Substance: BRIMONIDINE TARTRATE
     Dosage: 3 GTT DROPS, QD
     Route: 047
     Dates: start: 20250620, end: 20250620
  27. BRIMONIDINE [Suspect]
     Active Substance: BRIMONIDINE TARTRATE
     Dosage: 3 GTT DROPS, QD
     Route: 047
     Dates: start: 20250620, end: 20250620
  28. BRIMONIDINE [Suspect]
     Active Substance: BRIMONIDINE TARTRATE
     Dosage: 3 GTT DROPS, QD
     Dates: start: 20250620, end: 20250620
  29. ACUPAN [Suspect]
     Active Substance: NEFOPAM HYDROCHLORIDE
     Indication: Pain
     Dosage: 3 DOSAGE FORM, QD
     Dates: start: 20250620, end: 20250622
  30. ACUPAN [Suspect]
     Active Substance: NEFOPAM HYDROCHLORIDE
     Dosage: 3 DOSAGE FORM, QD
     Route: 048
     Dates: start: 20250620, end: 20250622
  31. ACUPAN [Suspect]
     Active Substance: NEFOPAM HYDROCHLORIDE
     Dosage: 3 DOSAGE FORM, QD
     Route: 048
     Dates: start: 20250620, end: 20250622
  32. ACUPAN [Suspect]
     Active Substance: NEFOPAM HYDROCHLORIDE
     Dosage: 3 DOSAGE FORM, QD
     Dates: start: 20250620, end: 20250622
  33. DIAMOX SEQUELS [Suspect]
     Active Substance: ACETAZOLAMIDE
     Indication: Product used for unknown indication
     Dosage: 750 MILLIGRAM, QD, SCORED TABLET
     Dates: start: 20250619, end: 20250628
  34. DIAMOX SEQUELS [Suspect]
     Active Substance: ACETAZOLAMIDE
     Dosage: 750 MILLIGRAM, QD, SCORED TABLET
     Route: 048
     Dates: start: 20250619, end: 20250628
  35. DIAMOX SEQUELS [Suspect]
     Active Substance: ACETAZOLAMIDE
     Dosage: 750 MILLIGRAM, QD, SCORED TABLET
     Route: 048
     Dates: start: 20250619, end: 20250628
  36. DIAMOX SEQUELS [Suspect]
     Active Substance: ACETAZOLAMIDE
     Dosage: 750 MILLIGRAM, QD, SCORED TABLET
     Dates: start: 20250619, end: 20250628
  37. PREDNISONE [Suspect]
     Active Substance: PREDNISONE
     Indication: Retinal detachment
     Dosage: 40 MILLIGRAM, QD
     Dates: start: 20250613, end: 20250618
  38. PREDNISONE [Suspect]
     Active Substance: PREDNISONE
     Dosage: 40 MILLIGRAM, QD
     Dates: start: 20250613, end: 20250618
  39. PREDNISONE [Suspect]
     Active Substance: PREDNISONE
     Dosage: 40 MILLIGRAM, QD
     Route: 048
     Dates: start: 20250613, end: 20250618
  40. PREDNISONE [Suspect]
     Active Substance: PREDNISONE
     Dosage: 40 MILLIGRAM, QD
     Route: 048
     Dates: start: 20250613, end: 20250618
  41. PREDNISONE [Suspect]
     Active Substance: PREDNISONE
     Dosage: 20 MILLIGRAM, QD
     Dates: start: 20250619, end: 20250620
  42. PREDNISONE [Suspect]
     Active Substance: PREDNISONE
     Dosage: 20 MILLIGRAM, QD
     Dates: start: 20250619, end: 20250620
  43. PREDNISONE [Suspect]
     Active Substance: PREDNISONE
     Dosage: 20 MILLIGRAM, QD
     Route: 048
     Dates: start: 20250619, end: 20250620
  44. PREDNISONE [Suspect]
     Active Substance: PREDNISONE
     Dosage: 20 MILLIGRAM, QD
     Route: 048
     Dates: start: 20250619, end: 20250620
  45. TROPICAMIDE [Suspect]
     Active Substance: TROPICAMIDE
     Indication: Retinal detachment
     Dosage: 1 GTT DROPS, QD
     Dates: start: 20250621, end: 20250622
  46. TROPICAMIDE [Suspect]
     Active Substance: TROPICAMIDE
     Dosage: 1 GTT DROPS, QD
     Route: 031
     Dates: start: 20250621, end: 20250622
  47. TROPICAMIDE [Suspect]
     Active Substance: TROPICAMIDE
     Dosage: 1 GTT DROPS, QD
     Route: 031
     Dates: start: 20250621, end: 20250622
  48. TROPICAMIDE [Suspect]
     Active Substance: TROPICAMIDE
     Dosage: 1 GTT DROPS, QD
     Dates: start: 20250621, end: 20250622
  49. TIMOLOL MALEATE [Suspect]
     Active Substance: TIMOLOL MALEATE
     Indication: Retinal detachment
     Dosage: 2 GTT DROPS, QD
     Dates: start: 20250620, end: 20250625
  50. TIMOLOL MALEATE [Suspect]
     Active Substance: TIMOLOL MALEATE
     Dosage: 2 GTT DROPS, QD
     Route: 031
     Dates: start: 20250620, end: 20250625
  51. TIMOLOL MALEATE [Suspect]
     Active Substance: TIMOLOL MALEATE
     Dosage: 2 GTT DROPS, QD
     Route: 031
     Dates: start: 20250620, end: 20250625
  52. TIMOLOL MALEATE [Suspect]
     Active Substance: TIMOLOL MALEATE
     Dosage: 2 GTT DROPS, QD
     Dates: start: 20250620, end: 20250625
  53. DEXAMETHASONE SODIUM PHOSPHATE [Suspect]
     Active Substance: DEXAMETHASONE SODIUM PHOSPHATE
     Indication: Retinal detachment
     Dosage: 3 GTT DROPS, QD
     Dates: start: 20250621
  54. DEXAMETHASONE SODIUM PHOSPHATE [Suspect]
     Active Substance: DEXAMETHASONE SODIUM PHOSPHATE
     Dosage: 3 GTT DROPS, QD
     Route: 047
     Dates: start: 20250621
  55. DEXAMETHASONE SODIUM PHOSPHATE [Suspect]
     Active Substance: DEXAMETHASONE SODIUM PHOSPHATE
     Dosage: 3 GTT DROPS, QD
     Route: 047
     Dates: start: 20250621
  56. DEXAMETHASONE SODIUM PHOSPHATE [Suspect]
     Active Substance: DEXAMETHASONE SODIUM PHOSPHATE
     Dosage: 3 GTT DROPS, QD
     Dates: start: 20250621
  57. HUMALOG [Suspect]
     Active Substance: INSULIN LISPRO
     Indication: Insulin-requiring type 2 diabetes mellitus
  58. HUMALOG [Suspect]
     Active Substance: INSULIN LISPRO
     Route: 058
  59. HUMALOG [Suspect]
     Active Substance: INSULIN LISPRO
     Route: 058
  60. HUMALOG [Suspect]
     Active Substance: INSULIN LISPRO
  61. MANNITOL [Suspect]
     Active Substance: MANNITOL
     Indication: Product used for unknown indication
     Dates: start: 20250620, end: 20250620
  62. MANNITOL [Suspect]
     Active Substance: MANNITOL
     Route: 042
     Dates: start: 20250620, end: 20250620
  63. MANNITOL [Suspect]
     Active Substance: MANNITOL
     Route: 042
     Dates: start: 20250620, end: 20250620
  64. MANNITOL [Suspect]
     Active Substance: MANNITOL
     Dates: start: 20250620, end: 20250620
  65. METFORMIN PAMOATE [Suspect]
     Active Substance: METFORMIN PAMOATE
     Indication: Insulin-requiring type 2 diabetes mellitus
     Dosage: 2 DOSAGE FORM, QD, SCORED TABLET
  66. METFORMIN PAMOATE [Suspect]
     Active Substance: METFORMIN PAMOATE
     Dosage: 2 DOSAGE FORM, QD, SCORED TABLET
     Route: 048
  67. METFORMIN PAMOATE [Suspect]
     Active Substance: METFORMIN PAMOATE
     Dosage: 2 DOSAGE FORM, QD, SCORED TABLET
     Route: 048
  68. METFORMIN PAMOATE [Suspect]
     Active Substance: METFORMIN PAMOATE
     Dosage: 2 DOSAGE FORM, QD, SCORED TABLET
  69. INSULIN GLARGINE [Suspect]
     Active Substance: INSULIN GLARGINE
     Indication: Insulin-requiring type 2 diabetes mellitus
     Dosage: 160 INTERNATIONAL UNIT, QD, 300 UNITS PER MILLILITER, SOLUTION FOR INJECTION IN PRE-FILLED PEN
  70. INSULIN GLARGINE [Suspect]
     Active Substance: INSULIN GLARGINE
     Dosage: 160 INTERNATIONAL UNIT, QD, 300 UNITS PER MILLILITER, SOLUTION FOR INJECTION IN PRE-FILLED PEN
     Route: 058
  71. INSULIN GLARGINE [Suspect]
     Active Substance: INSULIN GLARGINE
     Dosage: 160 INTERNATIONAL UNIT, QD, 300 UNITS PER MILLILITER, SOLUTION FOR INJECTION IN PRE-FILLED PEN
     Route: 058
  72. INSULIN GLARGINE [Suspect]
     Active Substance: INSULIN GLARGINE
     Dosage: 160 INTERNATIONAL UNIT, QD, 300 UNITS PER MILLILITER, SOLUTION FOR INJECTION IN PRE-FILLED PEN
  73. OZEMPIC [Suspect]
     Active Substance: SEMAGLUTIDE
     Indication: Insulin-requiring type 2 diabetes mellitus
     Dosage: 1 DOSAGE FORM, QW, SOLUTION FOR INJECTION IN PRE-FILLED PEN
  74. OZEMPIC [Suspect]
     Active Substance: SEMAGLUTIDE
     Dosage: 1 DOSAGE FORM, QW, SOLUTION FOR INJECTION IN PRE-FILLED PEN
     Route: 058
  75. OZEMPIC [Suspect]
     Active Substance: SEMAGLUTIDE
     Dosage: 1 DOSAGE FORM, QW, SOLUTION FOR INJECTION IN PRE-FILLED PEN
     Route: 058
  76. OZEMPIC [Suspect]
     Active Substance: SEMAGLUTIDE
     Dosage: 1 DOSAGE FORM, QW, SOLUTION FOR INJECTION IN PRE-FILLED PEN
  77. SILDENAFIL [Suspect]
     Active Substance: SILDENAFIL
     Indication: Product used for unknown indication
  78. SILDENAFIL [Suspect]
     Active Substance: SILDENAFIL
     Route: 058
  79. SILDENAFIL [Suspect]
     Active Substance: SILDENAFIL
     Route: 058
  80. SILDENAFIL [Suspect]
     Active Substance: SILDENAFIL

REACTIONS (1)
  - Ischaemic stroke [Recovered/Resolved]

NARRATIVE: CASE EVENT DATE: 20250621
